FAERS Safety Report 11629677 (Version 14)
Quarter: 2016Q2

REPORT INFORMATION
  Report Type: Report from Study
  Country: CA (occurrence: CA)
  Receive Date: 20151014
  Receipt Date: 20160406
  Transmission Date: 20160815
  Serious: Yes (Other)
  Sender: FDA-Public Use
  Company Number: CA-ROCHE-1568175

PATIENT
  Age: 68 Year
  Sex: Female
  Weight: 75.9 kg

DRUGS (16)
  1. IMODIUM [Concomitant]
     Active Substance: LOPERAMIDE HYDROCHLORIDE
     Indication: DIARRHOEA
     Dosage: AS REQUIRED
     Route: 065
  2. STATEX (CANADA) [Concomitant]
     Active Substance: MORPHINE SULFATE
  3. XELODA [Suspect]
     Active Substance: CAPECITABINE
     Indication: HER-2 POSITIVE BREAST CANCER
     Route: 042
  4. TAXOTERE [Suspect]
     Active Substance: DOCETAXEL
     Indication: PRODUCT USED FOR UNKNOWN INDICATION
     Route: 065
  5. LOPERAMIDE [Concomitant]
     Active Substance: LOPERAMIDE
  6. KADCYLA [Suspect]
     Active Substance: ADO-TRASTUZUMAB EMTANSINE
     Indication: HER-2 POSITIVE BREAST CANCER
     Route: 042
     Dates: start: 20151126
  7. ACCURETIC [Concomitant]
     Active Substance: HYDROCHLOROTHIAZIDE\QUINAPRIL HYDROCHLORIDE
  8. CLONAZEPAM. [Concomitant]
     Active Substance: CLONAZEPAM
  9. NEULASTA [Concomitant]
     Active Substance: PEGFILGRASTIM
  10. PERJETA [Suspect]
     Active Substance: PERTUZUMAB
     Route: 042
     Dates: start: 20150528, end: 20151027
  11. DOCUSATE [Concomitant]
     Active Substance: DOCUSATE
  12. SENNA [Concomitant]
     Active Substance: SENNA LEAF\SENNOSIDES\SENNOSIDES A AND B
  13. PERJETA [Suspect]
     Active Substance: PERTUZUMAB
     Indication: HER-2 POSITIVE BREAST CANCER
     Route: 042
     Dates: start: 20150507
  14. VENLAFAXINE [Concomitant]
     Active Substance: VENLAFAXINE HYDROCHLORIDE
  15. HERCEPTIN [Suspect]
     Active Substance: TRASTUZUMAB
     Indication: HER-2 POSITIVE BREAST CANCER
     Route: 042
     Dates: start: 20110729
  16. PROCHLORAZINE [Concomitant]

REACTIONS (30)
  - Pruritus [Not Recovered/Not Resolved]
  - Nasopharyngitis [Recovering/Resolving]
  - Pruritus [Recovering/Resolving]
  - Dry eye [Unknown]
  - Nausea [Unknown]
  - Heart rate increased [Unknown]
  - Weight decreased [Unknown]
  - Constipation [Not Recovered/Not Resolved]
  - Heart rate increased [Unknown]
  - Alopecia [Not Recovered/Not Resolved]
  - Blood pressure increased [Unknown]
  - Discomfort [Unknown]
  - Blood pressure decreased [Unknown]
  - Epistaxis [Recovered/Resolved]
  - Diarrhoea [Unknown]
  - Myalgia [Recovered/Resolved]
  - Feeling abnormal [Recovering/Resolving]
  - Blood pressure decreased [Unknown]
  - Swelling [Unknown]
  - Weight increased [Unknown]
  - Peripheral swelling [Unknown]
  - Drug ineffective [Unknown]
  - Lymphadenopathy [Not Recovered/Not Resolved]
  - Muscular weakness [Not Recovered/Not Resolved]
  - Epistaxis [Recovered/Resolved]
  - Pain in extremity [Not Recovered/Not Resolved]
  - Fatigue [Recovered/Resolved]
  - Rash [Unknown]
  - Heart rate increased [Unknown]
  - Blood pressure increased [Unknown]

NARRATIVE: CASE EVENT DATE: 2015
